FAERS Safety Report 24331673 (Version 1)
Quarter: 2024Q3

REPORT INFORMATION
  Report Type: Spontaneous
  Country: US (occurrence: US)
  Receive Date: 20240918
  Receipt Date: 20240918
  Transmission Date: 20241017
  Serious: Yes (Other)
  Sender: ABBVIE
  Company Number: US-ABBVIE-5923687

PATIENT

DRUGS (1)
  1. CREON [Suspect]
     Active Substance: PANCRELIPASE AMYLASE\PANCRELIPASE LIPASE\PANCRELIPASE PROTEASE
     Indication: Pancreatic failure
     Route: 048

REACTIONS (9)
  - Neoplasm malignant [Unknown]
  - Hereditary pancreatitis [Unknown]
  - Impaired fasting glucose [Unknown]
  - Hepatomegaly [Unknown]
  - Faecal elastase concentration decreased [Unknown]
  - Splenomegaly [Unknown]
  - Hepatic steatosis [Unknown]
  - Glucose tolerance impaired [Unknown]
  - Polycystic ovarian syndrome [Unknown]

NARRATIVE: CASE EVENT DATE: 20230101
